FAERS Safety Report 8567759-3 (Version None)
Quarter: 2012Q3

REPORT INFORMATION
  Report Type: 
  Country: None (occurrence: None)
  Receive Date: 20120803
  Receipt Date: 20120724
  Transmission Date: 20120928
  Serious: Yes (Hospitalization, Other)
  Sender: FDA-Public Use
  Company Number: FR-TEVA-350057ISR

PATIENT
  Sex: Female

DRUGS (2)
  1. CARBOPLATIN [Suspect]
     Indication: SMALL CELL LUNG CANCER EXTENSIVE STAGE
     Route: 042
     Dates: start: 20120529, end: 20120710
  2. ALIMTA [Suspect]
     Indication: SMALL CELL LUNG CANCER EXTENSIVE STAGE
     Route: 042
     Dates: start: 20120529, end: 20120710

REACTIONS (10)
  - HYPOTENSION [None]
  - INJECTION RELATED REACTION [None]
  - CONVULSION [None]
  - CHILLS [None]
  - METASTASES TO CENTRAL NERVOUS SYSTEM [None]
  - URINARY INCONTINENCE [None]
  - HOT FLUSH [None]
  - HYPERSENSITIVITY [None]
  - POSTICTAL STATE [None]
  - VOMITING [None]
